FAERS Safety Report 6140152-9 (Version None)
Quarter: 2009Q2

REPORT INFORMATION
  Report Type: 
  Country: None (occurrence: None)
  Receive Date: 20090401
  Receipt Date: 20090320
  Transmission Date: 20091009
  Serious: Yes (Other)
  Sender: FDA-Public Use
  Company Number: US-ROCHE-623382

PATIENT
  Sex: Male
  Weight: 74.8 kg

DRUGS (2)
  1. CAPECITABINE [Suspect]
     Dosage: TWO WEEKS ON AND TWO WEEKS OFF
     Route: 048
     Dates: start: 20080619, end: 20090201
  2. CHEMOTHERAPY [Concomitant]
     Route: 042

REACTIONS (1)
  - DISEASE PROGRESSION [None]
